FAERS Safety Report 4895611-3 (Version None)
Quarter: 2006Q1

REPORT INFORMATION
  Report Type: 
  Country: None (occurrence: None)
  Receive Date: 20060125
  Receipt Date: 20060117
  Transmission Date: 20060701
  Serious: Yes (Life-Threatening)
  Sender: FDA-Public Use
  Company Number: GXKR2006AU00522

PATIENT
  Age: 45 Year
  Sex: Female

DRUGS (1)
  1. LORATADIN [Suspect]
     Dosage: 10 MG, ONCE/SINGLE, ORAL
     Route: 048

REACTIONS (4)
  - DIZZINESS [None]
  - PROCEDURAL COMPLICATION [None]
  - TORSADE DE POINTES [None]
  - VENTRICULAR TACHYCARDIA [None]
